FAERS Safety Report 18136659 (Version 1)
Quarter: 2020Q3

REPORT INFORMATION
  Report Type: Spontaneous
  Country: CA (occurrence: CA)
  Receive Date: 20200811
  Receipt Date: 20200811
  Transmission Date: 20201103
  Serious: Yes (Other)
  Sender: FDA-Public Use
  Company Number: CA-TEVA-2020-CA-1811928

PATIENT
  Sex: Female

DRUGS (4)
  1. HYDROXYCHLOROQUINE SULFATE. [Suspect]
     Active Substance: HYDROXYCHLOROQUINE SULFATE
     Route: 065
  2. METHOTREXATE. [Suspect]
     Active Substance: METHOTREXATE
     Route: 065
  3. ARAVA [Suspect]
     Active Substance: LEFLUNOMIDE
     Route: 065
  4. SULFASALAZINE. [Suspect]
     Active Substance: SULFASALAZINE
     Route: 065

REACTIONS (6)
  - Abdominal discomfort [Unknown]
  - Lung disorder [Unknown]
  - Macular degeneration [Unknown]
  - Drug intolerance [Unknown]
  - Eye disorder [Unknown]
  - Contraindicated product administered [Unknown]
